FAERS Safety Report 21134759 (Version 2)
Quarter: 2023Q2

REPORT INFORMATION
  Report Type: Spontaneous
  Country: DE (occurrence: DE)
  Receive Date: 20220727
  Receipt Date: 20230403
  Transmission Date: 20230722
  Serious: Yes (Hospitalization)
  Sender: FDA-Public Use
  Company Number: DE-SAMSUNG BIOEPIS-SB-2022-01803

PATIENT
  Age: 37 Year
  Sex: Female
  Weight: 81 kg

DRUGS (5)
  1. PACLITAXEL [Suspect]
     Active Substance: PACLITAXEL
     Indication: Breast cancer female
     Dates: start: 20211123, end: 20220214
  2. CARBOPLATIN [Suspect]
     Active Substance: CARBOPLATIN
     Indication: Breast cancer female
     Dosage: 5 AUC, Q21 DAYS
     Dates: start: 20211123, end: 20220214
  3. ONTRUZANT [Suspect]
     Active Substance: TRASTUZUMAB-DTTB
     Indication: Breast cancer female
     Dosage: Q21 DAYS
     Dates: start: 20211123, end: 20220214
  4. PERTUZUMAB [Suspect]
     Active Substance: PERTUZUMAB
     Indication: Breast cancer female
     Dosage: Q21 DAYS
     Dates: start: 20211123, end: 20220214
  5. Kalinor [Concomitant]
     Indication: Hyperkalaemia
     Dosage: UNKNOWN
     Dates: start: 20220124

REACTIONS (5)
  - Hepatotoxicity [Recovered/Resolved]
  - Vomiting [Not Recovered/Not Resolved]
  - Nausea [Unknown]
  - Diarrhoea [Recovered/Resolved]
  - Cardiovascular disorder [Recovered/Resolved]

NARRATIVE: CASE EVENT DATE: 20211123
